FAERS Safety Report 15040872 (Version 3)
Quarter: 2018Q3

REPORT INFORMATION
  Report Type: Report from Study
  Country: CA (occurrence: CA)
  Receive Date: 20180620
  Receipt Date: 20180913
  Transmission Date: 20181010
  Serious: Yes (Other)
  Sender: FDA-Public Use
  Company Number: CA-HLSUS-2018-CA-000955

PATIENT
  Age: 62 Year
  Sex: Male
  Weight: 101.15 kg

DRUGS (7)
  1. FINASTERIDE. [Concomitant]
     Active Substance: FINASTERIDE
  2. SYNTHROID [Concomitant]
     Active Substance: LEVOTHYROXINE SODIUM
  3. FLORINEF ACETATE [Concomitant]
     Active Substance: FLUDROCORTISONE ACETATE
     Dosage: 0.1MG AM
  4. EPIVAL [Concomitant]
     Active Substance: DIVALPROEX SODIUM
     Dosage: 1000MG HS
  5. CLOZARIL [Suspect]
     Active Substance: CLOZAPINE
     Indication: SCHIZOPHRENIA
     Dosage: 300MG OD
     Route: 048
     Dates: start: 20170302
  6. DILANTIN [Concomitant]
     Active Substance: PHENYTOIN
     Dosage: 100MG  TID
  7. ASA [Concomitant]
     Active Substance: ASPIRIN

REACTIONS (2)
  - Cellulitis [Unknown]
  - Clostridium difficile infection [Unknown]

NARRATIVE: CASE EVENT DATE: 20180601
